FAERS Safety Report 16213161 (Version 1)
Quarter: 2019Q2

REPORT INFORMATION
  Report Type: Spontaneous
  Country: CH (occurrence: CH)
  Receive Date: 20190418
  Receipt Date: 20190418
  Transmission Date: 20190711
  Serious: Yes (Hospitalization)
  Sender: FDA-Public Use
  Company Number: CH-ROCHE-2301626

PATIENT
  Age: 42 Year
  Sex: Male

DRUGS (8)
  1. XANAX [Suspect]
     Active Substance: ALPRAZOLAM
     Indication: SUBSTANCE DEPENDENCE
     Dosage: 2 MG 0-1-1-2
     Route: 048
  2. XANAX [Suspect]
     Active Substance: ALPRAZOLAM
     Indication: SUBSTANCE DEPENDENCE
     Dosage: 2 MG 0-1-0-2
     Route: 048
  3. RITALIN [Suspect]
     Active Substance: METHYLPHENIDATE HYDROCHLORIDE
     Indication: PRODUCT USED FOR UNKNOWN INDICATION
     Route: 048
  4. DUPHALAC [Suspect]
     Active Substance: LACTULOSE
     Indication: PRODUCT USED FOR UNKNOWN INDICATION
     Route: 048
  5. VALIUM [Suspect]
     Active Substance: DIAZEPAM
     Indication: SUBSTANCE DEPENDENCE
     Route: 048
  6. MEFENACID [Suspect]
     Active Substance: MEFENAMIC ACID
     Indication: PRODUCT USED FOR UNKNOWN INDICATION
     Dosage: AS NECESSARY
     Route: 048
  7. METHADONE HYDROCHLORIDE. [Suspect]
     Active Substance: METHADONE HYDROCHLORIDE
     Indication: SUBSTANCE DEPENDENCE
     Dosage: 10 MG/ML
     Route: 048
     Dates: start: 201801
  8. SERESTA [Suspect]
     Active Substance: OXAZEPAM
     Indication: SUBSTANCE DEPENDENCE
     Dosage: 1-1-0-1
     Route: 048

REACTIONS (4)
  - Oedema [Not Recovered/Not Resolved]
  - Weight increased [Not Recovered/Not Resolved]
  - Dyspnoea [Not Recovered/Not Resolved]
  - Performance status decreased [Not Recovered/Not Resolved]

NARRATIVE: CASE EVENT DATE: 201809
